FAERS Safety Report 7413014-4 (Version None)
Quarter: 2011Q2

REPORT INFORMATION
  Report Type: 
  Country: None (occurrence: None)
  Receive Date: 20110405
  Receipt Date: 20110322
  Transmission Date: 20111010
  Serious: Yes (Death, Hospitalization, Other)
  Sender: FDA-Public Use
  Company Number: 2010003077

PATIENT
  Age: 58 Year
  Sex: Male

DRUGS (9)
  1. TRAMADOL HCL [Concomitant]
  2. ALDACTONE [Concomitant]
  3. SORAFENIB (TABLET) [Suspect]
     Indication: HEPATIC NEOPLASM MALIGNANT
     Dosage: 400 MG, BID, ORAL
     Route: 048
     Dates: start: 20100608, end: 20100630
  4. FOLIC ACID [Concomitant]
  5. ERLOTINIB (ERLOTINIB) (TABLET) (ERLOTINIB) [Suspect]
     Indication: HEPATIC NEOPLASM MALIGNANT
     Dosage: 150 MG, QD, ORAL
     Route: 048
     Dates: start: 20100608, end: 20100630
  6. HUMALOG [Concomitant]
  7. IMODIUM [Concomitant]
  8. ERLOTINIB (ERLOTINIB) TABLET [Suspect]
  9. RAMIPRIL [Concomitant]

REACTIONS (4)
  - PROTHROMBIN TIME PROLONGED [None]
  - GASTROINTESTINAL HAEMORRHAGE [None]
  - HAEMOGLOBIN DECREASED [None]
  - ENCEPHALOPATHY [None]
